FAERS Safety Report 6237411-8 (Version None)
Quarter: 2009Q2

REPORT INFORMATION
  Report Type: 
  Country: None (occurrence: None)
  Receive Date: 20090619
  Receipt Date: 20090615
  Transmission Date: 20091009
  Serious: Yes (Life-Threatening, Hospitalization, Other)
  Sender: FDA-Public Use
  Company Number: HQWYE152530AUG06

PATIENT
  Sex: Female
  Weight: 48 kg

DRUGS (13)
  1. MYLOTARG [Suspect]
     Indication: ACUTE MYELOID LEUKAEMIA
     Route: 041
     Dates: start: 20060512, end: 20060512
  2. MYLOTARG [Suspect]
     Route: 041
     Dates: start: 20060526, end: 20060526
  3. BAKTAR [Suspect]
     Indication: PROPHYLAXIS
     Route: 048
     Dates: start: 20060512, end: 20060814
  4. VFEND [Suspect]
     Route: 041
     Dates: start: 20060510, end: 20060816
  5. MEROPEN [Suspect]
     Dosage: 2 G/DAY
     Route: 041
     Dates: start: 20060511, end: 20060526
  6. MEROPEN [Suspect]
     Dosage: 1.5G/DAY
     Route: 041
     Dates: start: 20060606, end: 20060626
  7. ACLARUBICIN [Concomitant]
     Indication: ACUTE MYELOID LEUKAEMIA
     Dosage: UNKNOWN
     Route: 042
     Dates: start: 20060609, end: 20060615
  8. DALACIN [Concomitant]
     Dosage: 1200 MG/DAY
     Route: 041
     Dates: start: 20060531, end: 20060605
  9. GRAN [Concomitant]
     Dosage: 75 UG/DAY
     Route: 058
     Dates: start: 20060602, end: 20060606
  10. TARGOCID [Suspect]
     Dosage: 400 MG/DAY
     Route: 041
     Dates: start: 20060608, end: 20060619
  11. CYTARABINE [Concomitant]
     Indication: ACUTE MYELOID LEUKAEMIA
     Dosage: UNKNOWN
     Route: 042
     Dates: start: 20060607, end: 20060714
  12. GASTER [Concomitant]
     Indication: PROPHYLAXIS
     Dosage: 40 MG/DAY
     Route: 048
     Dates: start: 20060512, end: 20060806
  13. ISEPACIN [Concomitant]
     Dosage: 40 MG/DAY
     Route: 041
     Dates: start: 20060511, end: 20060525

REACTIONS (10)
  - ASPARTATE AMINOTRANSFERASE INCREASED [None]
  - BLOOD ALKALINE PHOSPHATASE INCREASED [None]
  - BLOOD LACTATE DEHYDROGENASE INCREASED [None]
  - DISSEMINATED INTRAVASCULAR COAGULATION [None]
  - GAMMA-GLUTAMYLTRANSFERASE INCREASED [None]
  - ORAL HERPES [None]
  - PYREXIA [None]
  - SEPSIS [None]
  - TUMOUR LYSIS SYNDROME [None]
  - WHITE BLOOD CELL COUNT DECREASED [None]
